FAERS Safety Report 18518455 (Version 2)
Quarter: 2020Q4

REPORT INFORMATION
  Report Type: Spontaneous
  Country: US (occurrence: US)
  Receive Date: 20201118
  Receipt Date: 20201219
  Transmission Date: 20210114
  Serious: No
  Sender: FDA-Public Use
  Company Number: US-ASTRAZENECA-2020SF39166

PATIENT
  Sex: Male
  Weight: 126.1 kg

DRUGS (16)
  1. ASPIRIN. [Concomitant]
     Active Substance: ASPIRIN
     Indication: CARDIAC DISORDER
     Dosage: 81.0MG UNKNOWN
  2. VALSARTAN. [Concomitant]
     Active Substance: VALSARTAN
     Dosage: 160-25MG.
  3. BENADRYL [Concomitant]
     Active Substance: DIPHENHYDRAMINE HYDROCHLORIDE
  4. OLOPATADINE 0.1% [Concomitant]
     Active Substance: OLOPATADINE
     Indication: DRUG HYPERSENSITIVITY
  5. OMEPRAZOLE ER [Concomitant]
     Dosage: 10.0MG UNKNOWN
  6. ATORVASTATIN [Concomitant]
     Active Substance: ATORVASTATIN
  7. LORATADINE. [Concomitant]
     Active Substance: LORATADINE
     Dosage: 10.0MG UNKNOWN
  8. BYDUREON BCISE [Suspect]
     Active Substance: EXENATIDE
     Indication: DIABETES MELLITUS
     Route: 058
     Dates: start: 202009
  9. AZELASTINE NASAL SPRAY [Concomitant]
     Active Substance: AZELASTINE
     Dosage: 137.0UG UNKNOWN
     Route: 045
  10. JARDIANCE [Concomitant]
     Active Substance: EMPAGLIFLOZIN
     Dosage: 25.0MG UNKNOWN
  11. CBD EXTRACT OIL [Concomitant]
     Indication: BONE PAIN
     Dosage: AT NIGHT
  12. CITALOPRAM [Concomitant]
     Active Substance: CITALOPRAM HYDROBROMIDE
  13. GABAPENTIN. [Concomitant]
     Active Substance: GABAPENTIN
  14. MONTELUKAST [Concomitant]
     Active Substance: MONTELUKAST SODIUM
  15. METOPROLOL SUCCINATE ER [Concomitant]
     Active Substance: METOPROLOL SUCCINATE
     Dosage: 50.0MG UNKNOWN
  16. MELATONIN [Concomitant]
     Active Substance: MELATONIN
     Dosage: AS REQUIRED

REACTIONS (7)
  - Wrong technique in device usage process [Unknown]
  - Abdominal discomfort [Unknown]
  - Flatulence [Unknown]
  - Cardiac disorder [Unknown]
  - Skin striae [Unknown]
  - Incorrect dose administered by device [Unknown]
  - Device leakage [Unknown]
